FAERS Safety Report 6122626-X (Version None)
Quarter: 2009Q1

REPORT INFORMATION
  Report Type: 
  Country: None (occurrence: None)
  Receive Date: 20090318
  Receipt Date: 20090307
  Transmission Date: 20090719
  Serious: Yes (Other)
  Sender: FDA-Public Use
  Company Number: CA-JNJFOC-20090302275

PATIENT
  Sex: Female
  Weight: 111.5 kg

DRUGS (4)
  1. REMICADE [Suspect]
     Indication: ANKYLOSING SPONDYLITIS
     Route: 042
  2. YASMIN [Concomitant]
     Indication: DYSMENORRHOEA
  3. BLOOD PRESSURE PILL [Concomitant]
     Indication: HYPERTENSION
  4. DIABETES MEDICATION [Concomitant]
     Indication: DIABETES MELLITUS

REACTIONS (2)
  - RECTOCELE [None]
  - RENAL MASS [None]
